FAERS Safety Report 7121492-3 (Version None)
Quarter: 2010Q4

REPORT INFORMATION
  Report Type: 
  Country: None (occurrence: None)
  Receive Date: 20101124
  Receipt Date: 20101115
  Transmission Date: 20110411
  Serious: No
  Sender: FDA-Public Use
  Company Number: US-ELI_LILLY_AND_COMPANY-US201010004542

PATIENT
  Sex: Male

DRUGS (4)
  1. CYMBALTA [Suspect]
     Dosage: 60 MG, UNKNOWN
     Dates: start: 20050927
  2. CYMBALTA [Suspect]
     Dosage: 120 MG, UNK
  3. SEROQUEL [Concomitant]
     Dosage: 200 MG, EACH EVENING
     Route: 048
  4. GLIPIZIDE [Concomitant]

REACTIONS (4)
  - AGGRESSION [None]
  - DRUG INEFFECTIVE [None]
  - INSOMNIA [None]
  - MANIA [None]
